FAERS Safety Report 19448891 (Version 1)
Quarter: 2021Q2

REPORT INFORMATION
  Report Type: Spontaneous
  Country: US (occurrence: US)
  Receive Date: 20210622
  Receipt Date: 20210622
  Transmission Date: 20210717
  Serious: No
  Sender: FDA-Public Use
  Company Number: US-PFIZER INC-2021284935

PATIENT
  Age: 60 Year
  Sex: Female
  Weight: 86.18 kg

DRUGS (2)
  1. CELECOXIB. [Suspect]
     Active Substance: CELECOXIB
     Indication: BACK DISORDER
     Dosage: 200 MG
     Dates: start: 2019
  2. CELECOXIB. [Suspect]
     Active Substance: CELECOXIB
     Indication: SWELLING

REACTIONS (1)
  - Drug ineffective [Unknown]
